FAERS Safety Report 8567712-X (Version None)
Quarter: 2012Q3

REPORT INFORMATION
  Report Type: 
  Country: None (occurrence: None)
  Receive Date: 20120803
  Receipt Date: 20120717
  Transmission Date: 20120928
  Serious: No
  Sender: FDA-Public Use
  Company Number: US-ASTRAZENECA-2012SE50528

PATIENT
  Age: 60 Year
  Sex: Female
  Weight: 105.2 kg

DRUGS (11)
  1. NEXIUM [Suspect]
     Indication: GASTROOESOPHAGEAL REFLUX DISEASE
     Route: 048
     Dates: start: 19990101, end: 20040101
  2. FISH OIL [Concomitant]
  3. FLEXERIL [Concomitant]
  4. NEXIUM [Suspect]
     Indication: GASTRITIS
     Route: 048
     Dates: start: 19990101, end: 20040101
  5. PRAVASTATIN [Concomitant]
  6. VITAMIN E [Concomitant]
  7. NEXIUM [Suspect]
     Route: 048
     Dates: start: 20120101
  8. LISINOPRIL [Suspect]
     Indication: BLOOD PRESSURE
     Route: 048
  9. ASPIRIN [Concomitant]
  10. NEXIUM [Suspect]
     Route: 048
     Dates: start: 20120101
  11. SYNTHROID [Concomitant]

REACTIONS (3)
  - APHAGIA [None]
  - DRUG DOSE OMISSION [None]
  - ABDOMINAL PAIN UPPER [None]
